FAERS Safety Report 7382702-0 (Version None)
Quarter: 2011Q1

REPORT INFORMATION
  Report Type: 
  Country: None (occurrence: None)
  Receive Date: 20110330
  Receipt Date: 20110321
  Transmission Date: 20110831
  Serious: Yes (Death)
  Sender: FDA-Public Use
  Company Number: US-BIOGENIDEC-2011BI004574

PATIENT
  Age: 63 Year
  Sex: Male

DRUGS (1)
  1. TYSABRI [Suspect]
     Indication: MULTIPLE SCLEROSIS
     Route: 042
     Dates: start: 20060822, end: 20061214

REACTIONS (4)
  - HYPOXIC-ISCHAEMIC ENCEPHALOPATHY [None]
  - CARDIAC ARREST [None]
  - ABNORMAL BEHAVIOUR [None]
  - MENTAL DISORDER [None]
